FAERS Safety Report 5573514-9 (Version None)
Quarter: 2007Q4

REPORT INFORMATION
  Report Type: 
  Country: None (occurrence: None)
  Receive Date: 20071226
  Receipt Date: 20071221
  Transmission Date: 20080405
  Serious: Yes (Other)
  Sender: FDA-Public Use
  Company Number: PHNU2007DE03227

PATIENT
  Age: 63 Year
  Sex: Male
  Weight: 108 kg

DRUGS (4)
  1. ZOMETA [Suspect]
     Indication: METASTASES TO BONE
     Dosage: 4 MG, QMO
     Route: 042
     Dates: start: 20040811, end: 20070831
  2. PROVASIN TAB [Concomitant]
     Indication: HYPERTENSION
     Dates: start: 20030701
  3. ACTRAPHANE [Concomitant]
     Indication: DIABETES MELLITUS
     Dosage: 18 IE
     Dates: start: 20050801
  4. ESTRAMUSTINE [Concomitant]
     Dates: start: 20070524

REACTIONS (2)
  - JAW OPERATION [None]
  - OSTEONECROSIS [None]
